FAERS Safety Report 12378969 (Version 2)
Quarter: 2016Q2

REPORT INFORMATION
  Report Type: Report from Study
  Country: US (occurrence: US)
  Receive Date: 20160517
  Receipt Date: 20160617
  Transmission Date: 20160815
  Serious: Yes (Hospitalization, Other)
  Sender: FDA-Public Use
  Company Number: US-ABBVIE-16K-163-1624120-00

PATIENT
  Sex: Female
  Weight: 77.63 kg

DRUGS (2)
  1. HUMIRA [Suspect]
     Active Substance: ADALIMUMAB
     Indication: RHEUMATOID ARTHRITIS
     Route: 058
     Dates: start: 2011, end: 2013
  2. HUMIRA [Suspect]
     Active Substance: ADALIMUMAB
     Route: 058
     Dates: start: 2013, end: 201601

REACTIONS (9)
  - Intervertebral disc disorder [Unknown]
  - Nerve compression [Unknown]
  - Peripheral swelling [Unknown]
  - Abscess rupture [Unknown]
  - Staphylococcal sepsis [Unknown]
  - Fall [Unknown]
  - Incision site abscess [Unknown]
  - Wound infection staphylococcal [Unknown]
  - Fracture [Unknown]

NARRATIVE: CASE EVENT DATE: 2016
